FAERS Safety Report 18014364 (Version 1)
Quarter: 2020Q3

REPORT INFORMATION
  Report Type: Report from Study
  Country: IT (occurrence: IT)
  Receive Date: 20200713
  Receipt Date: 20200713
  Transmission Date: 20201103
  Serious: Yes (Hospitalization)
  Sender: FDA-Public Use
  Company Number: IT-PFIZER INC-2020265620

PATIENT
  Age: 30 Year
  Sex: Female

DRUGS (5)
  1. PAROXETINE. [Suspect]
     Active Substance: PAROXETINE
     Dosage: 40 MG, TOTAL
     Route: 048
     Dates: start: 20200618, end: 20200618
  2. MUTABON ANTIDEPRESSIVO [Interacting]
     Active Substance: AMITRIPTYLINE HYDROCHLORIDE\PERPHENAZINE
     Dosage: 10 DF, TOTAL
     Route: 048
     Dates: start: 20200618, end: 20200618
  3. XANAX [Suspect]
     Active Substance: ALPRAZOLAM
     Dosage: 2.5 MG TOTAL
     Route: 048
     Dates: start: 20200618, end: 20200618
  4. LAMOTRIGINE. [Concomitant]
     Active Substance: LAMOTRIGINE
     Dosage: 100 MG
     Route: 048
  5. ZOLOFT [Concomitant]
     Active Substance: SERTRALINE HYDROCHLORIDE
     Dosage: 1 DF
     Route: 048

REACTIONS (4)
  - Drug abuse [Unknown]
  - Drug interaction [Unknown]
  - Sopor [Recovering/Resolving]
  - Toxicity to various agents [Recovering/Resolving]

NARRATIVE: CASE EVENT DATE: 20200618
